FAERS Safety Report 21602481 (Version 1)
Quarter: 2022Q4

REPORT INFORMATION
  Report Type: Report from Study
  Country: TH (occurrence: TH)
  Receive Date: 20221116
  Receipt Date: 20221116
  Transmission Date: 20230113
  Serious: Yes (Hospitalization)
  Sender: FDA-Public Use
  Company Number: TH-ELI_LILLY_AND_COMPANY-TH202211003335

PATIENT
  Age: 74 Year
  Sex: Female

DRUGS (2)
  1. ABEMACICLIB [Suspect]
     Active Substance: ABEMACICLIB
     Indication: Hormone receptor positive HER2 negative breast cancer
     Dosage: 150 MG, BID (1 TABLET IN THE MORNING AND IN THE EVENING)
     Route: 048
     Dates: start: 20221017
  2. ABEMACICLIB [Suspect]
     Active Substance: ABEMACICLIB
     Dosage: 150 MG, BID (1 TABLET IN THE MORNING AND IN THE EVENING)
     Route: 048
     Dates: start: 20221110

REACTIONS (4)
  - Blood sodium decreased [Not Recovered/Not Resolved]
  - Diarrhoea [Recovering/Resolving]
  - Blood electrolytes decreased [Unknown]
  - Decreased appetite [Unknown]

NARRATIVE: CASE EVENT DATE: 20221001
